FAERS Safety Report 9567000 (Version 1)
Quarter: 2013Q3

REPORT INFORMATION
  Report Type: Spontaneous
  Country: US (occurrence: US)
  Receive Date: 20130930
  Receipt Date: 20130930
  Transmission Date: 20140515
  Serious: No
  Sender: FDA-Public Use
  Company Number: US-AMGEN-USASP2012061114

PATIENT
  Age: 72 Year
  Sex: Female

DRUGS (10)
  1. ENBREL [Suspect]
     Indication: PRODUCT USED FOR UNKNOWN INDICATION
     Dosage: 50 MG, QWK
     Route: 058
  2. MICARDIS HCT [Concomitant]
     Dosage: 40/12.5UNK, UNK
  3. CELEBREX [Concomitant]
     Dosage: 50 MG, UNK
  4. LIPITOR ORIFARM [Concomitant]
     Dosage: 10 MG, UNK
  5. MULTIVITAMIN                       /00097801/ [Concomitant]
     Dosage: UNK
  6. OMEGA 100 [Concomitant]
     Dosage: 1000 MG, UNK
  7. B-COMPLEX                          /00003501/ [Concomitant]
     Dosage: UNK
  8. CALCIUM                            /00060701/ [Concomitant]
     Dosage: 500 UNK, UNK
  9. COQ-10 [Concomitant]
     Dosage: 10 UNK, UNK
  10. ZETIA [Concomitant]
     Dosage: 10 MG, UNK

REACTIONS (1)
  - Nasopharyngitis [Unknown]
